FAERS Safety Report 13188934 (Version 1)
Quarter: 2017Q1

REPORT INFORMATION
  Report Type: Spontaneous
  Country: US (occurrence: US)
  Receive Date: 20170203
  Receipt Date: 20170203
  Transmission Date: 20170428
  Serious: Yes (Life-Threatening, Hospitalization)
  Sender: FDA-Public Use
  Company Number: None

PATIENT
  Age: 69 Year
  Sex: Male
  Weight: 123.1 kg

DRUGS (1)
  1. RIVAROXABAN [Suspect]
     Active Substance: RIVAROXABAN
     Indication: ATRIAL FIBRILLATION
     Route: 048
     Dates: start: 20161101, end: 20161228

REACTIONS (4)
  - Diverticulitis [None]
  - Gastric haemorrhage [None]
  - Gastritis erosive [None]
  - Coronary artery disease [None]

NARRATIVE: CASE EVENT DATE: 20161228
